FAERS Safety Report 16387940 (Version 2)
Quarter: 2019Q2

REPORT INFORMATION
  Report Type: Report from Study
  Country: US (occurrence: US)
  Receive Date: 20190604
  Receipt Date: 20190619
  Transmission Date: 20190711
  Serious: Yes (Hospitalization)
  Sender: FDA-Public Use
  Company Number: US-PFIZER INC-2019236069

PATIENT
  Age: 79 Year
  Sex: Female

DRUGS (1)
  1. IBRANCE [Suspect]
     Active Substance: PALBOCICLIB
     Indication: BREAST CANCER FEMALE
     Dosage: 125 MG, CYCLIC (IBRANCE FOR 21 DAYS ON/7 DAYS OFF)
     Route: 048
     Dates: start: 20190522

REACTIONS (7)
  - Vomiting [Unknown]
  - Mental disorder [Recovered/Resolved]
  - Condition aggravated [Recovered/Resolved]
  - Hepatic pain [Unknown]
  - Asthenia [Recovered/Resolved]
  - Confusional state [Unknown]
  - Gait disturbance [Unknown]
